FAERS Safety Report 7753417-1 (Version None)
Quarter: 2011Q3

REPORT INFORMATION
  Report Type: 
  Country: None (occurrence: None)
  Receive Date: 20110915
  Receipt Date: 20101019
  Transmission Date: 20111222
  Serious: Yes (Hospitalization, Other)
  Sender: FDA-Public Use
  Company Number: KR-UCBSA-017239

PATIENT
  Sex: Female
  Weight: 45.3 kg

DRUGS (20)
  1. METHOTREXATE [Concomitant]
     Indication: RHEUMATOID ARTHRITIS
     Route: 048
     Dates: start: 20020102, end: 20100813
  2. FOLIC ACID [Concomitant]
     Indication: RHEUMATOID ARTHRITIS
     Route: 048
     Dates: start: 20010604, end: 20100813
  3. CAL-D-VITA [Concomitant]
     Indication: OSTEOPOROSIS PROPHYLAXIS
     Dosage: 1 TABLET DAILY
     Route: 048
     Dates: start: 20100107, end: 20100813
  4. ATORVASTATIN [Concomitant]
     Indication: PROPHYLAXIS
     Route: 048
     Dates: start: 20091127, end: 20100813
  5. DEFLAZACORT [Concomitant]
     Route: 048
     Dates: start: 20100917
  6. PIROXICAM PATCH [Concomitant]
     Indication: RHEUMATOID ARTHRITIS
     Route: 061
     Dates: start: 20100203, end: 20100813
  7. CERTOLIZUMAB PEGOL [Suspect]
     Indication: RHEUMATOID ARTHRITIS
     Route: 058
     Dates: start: 20100428, end: 20100721
  8. MELOXICAM [Concomitant]
     Indication: RHEUMATOID ARTHRITIS
     Route: 048
     Dates: start: 20010604, end: 20100813
  9. METFORMIN HCL [Concomitant]
     Route: 048
     Dates: start: 20101015, end: 20101015
  10. ASPIRIN [Concomitant]
     Route: 048
     Dates: start: 20101015
  11. REBAMIPIDE [Concomitant]
     Indication: PROPHYLAXIS AGAINST GASTROINTESTINAL ULCER
     Route: 048
     Dates: start: 20010604, end: 20100813
  12. METFORMIN HCL [Concomitant]
     Indication: DIABETES MELLITUS
     Route: 048
     Dates: start: 20091127, end: 20100813
  13. ASPIRIN [Concomitant]
     Indication: THROMBOSIS PROPHYLAXIS
     Route: 048
     Dates: start: 20091127, end: 20100813
  14. FERROUS SULFATE TAB [Concomitant]
     Indication: HAEMOGLOBIN DECREASED
     Route: 048
     Dates: start: 20090624, end: 20100813
  15. CAL-D-VITA [Concomitant]
     Dosage: 1 TABLET
     Route: 048
     Dates: start: 20100917
  16. FOLIC ACID [Concomitant]
     Route: 048
     Dates: start: 20100909
  17. DEFLAZACORT [Concomitant]
     Indication: RHEUMATOID ARTHRITIS
     Route: 048
     Dates: start: 20040108, end: 20100813
  18. ATORVASTATIN [Concomitant]
     Route: 048
     Dates: start: 20101015
  19. METHOTREXATE [Concomitant]
     Route: 048
     Dates: start: 20100909
  20. FERROUS SULFATE TAB [Concomitant]
     Route: 048
     Dates: start: 20100917

REACTIONS (5)
  - COLITIS ISCHAEMIC [None]
  - MUCOSAL INFLAMMATION [None]
  - ORAL CANDIDIASIS [None]
  - PANCYTOPENIA [None]
  - SMALL INTESTINAL OBSTRUCTION [None]
